FAERS Safety Report 12005631 (Version 1)
Quarter: 2016Q1

REPORT INFORMATION
  Report Type: Report from Study
  Country: US (occurrence: US)
  Receive Date: 20160204
  Receipt Date: 20160204
  Transmission Date: 20160526
  Serious: No
  Sender: FDA-Public Use
  Company Number: US-ABBVIE-15K-163-1429069-00

PATIENT
  Age: 39 Year
  Sex: Male

DRUGS (1)
  1. HUMIRA [Suspect]
     Active Substance: ADALIMUMAB
     Indication: RHEUMATOID ARTHRITIS
     Dosage: BI-WEEKLY
     Route: 065
     Dates: start: 20150526

REACTIONS (8)
  - Cough [Unknown]
  - Influenza like illness [Recovering/Resolving]
  - Headache [Unknown]
  - Respiratory tract congestion [Unknown]
  - Genital rash [Not Recovered/Not Resolved]
  - Nausea [Unknown]
  - Body temperature fluctuation [Unknown]
  - Vomiting [Unknown]

NARRATIVE: CASE EVENT DATE: 2015
